FAERS Safety Report 4488041-X (Version None)
Quarter: 2004Q4

REPORT INFORMATION
  Report Type: 
  Country: None (occurrence: None)
  Receive Date: 20041028
  Receipt Date: 20040812
  Transmission Date: 20050328
  Serious: Yes (Hospitalization)
  Sender: FDA-Public Use
  Company Number: US-GLAXOSMITHKLINE-A0521996A

PATIENT
  Age: 70 Year
  Sex: Female

DRUGS (10)
  1. SEREVENT [Suspect]
     Indication: CHRONIC OBSTRUCTIVE AIRWAYS DISEASE
     Dosage: 1PUFF TWICE PER DAY
     Route: 055
     Dates: end: 20040616
  2. FLOVENT [Suspect]
     Indication: CHRONIC OBSTRUCTIVE AIRWAYS DISEASE
     Route: 055
     Dates: end: 20040616
  3. ADVAIR [Suspect]
     Indication: CHRONIC OBSTRUCTIVE AIRWAYS DISEASE
     Dosage: 1PUFF TWICE PER DAY
     Route: 055
     Dates: start: 20040616
  4. XOPENEX [Suspect]
     Dosage: 1PUFF TWICE PER DAY
     Dates: start: 20040601
  5. IPATROPIUM BROMIDE [Concomitant]
  6. ALBUTEROL [Concomitant]
  7. PREDNISONE [Concomitant]
  8. OXYGEN [Concomitant]
  9. VIACTIV [Concomitant]
  10. VITALERT [Concomitant]

REACTIONS (10)
  - DIZZINESS [None]
  - DRUG INEFFECTIVE [None]
  - DRY MOUTH [None]
  - DYSPNOEA [None]
  - FUNGAL INFECTION [None]
  - FUNGAL OESOPHAGITIS [None]
  - HEADACHE [None]
  - HYPOAESTHESIA [None]
  - ORAL FUNGAL INFECTION [None]
  - PNEUMONIA [None]
